FAERS Safety Report 8818859 (Version 1)
Quarter: 2012Q4

REPORT INFORMATION
  Report Type: Report from Study
  Country: AU (occurrence: AU)
  Receive Date: 20121001
  Receipt Date: 20121001
  Transmission Date: 20130627
  Serious: Yes (Hospitalization, Other)
  Sender: FDA-Public Use
  Company Number: AU-ASTRAZENECA-2012SE73660

PATIENT
  Age: 0 Day
  Sex: Male
  Weight: 3.3 kg

DRUGS (7)
  1. SEROQUEL XR [Suspect]
     Indication: PSYCHOTIC DISORDER
     Dosage: 400 MG, DAILY, PRE-PREGNANCY UNTIL 2/40 WEEKS
     Route: 064
  2. SEROQUEL XR [Suspect]
     Indication: PSYCHOTIC DISORDER
     Dosage: 50-200 MG, DAILY, FROM 19/40 WEEKS ONGOING
     Route: 064
  3. FLUOXETINE [Concomitant]
     Indication: ANTIDEPRESSANT THERAPY
     Dosage: 100 MG,  DAILY, PRE-PREGNANCY UNTIL 2/40 WEEKS
     Route: 065
  4. FLUOXETINE [Concomitant]
     Indication: ANTIDEPRESSANT THERAPY
     Dosage: 100 MG, DAILY, FROM 19/40 WEEKS
     Route: 065
  5. SODIUM VALPROATE [Concomitant]
     Indication: AFFECTIVE DISORDER
     Dosage: 600 MG, DAILY, PRE-PREGNANCY UNTIL 2/40 WEEKS
     Route: 065
  6. ELEVIT [Concomitant]
     Indication: MEDICAL DIET
     Dosage: 1 TABLET, DAILY, FROM FIRST TRIMESTER UNTIL END OF FIRST TRIMESTER
     Route: 065
  7. NUROFEN [Concomitant]
     Indication: CARPAL TUNNEL SYNDROME
     Dosage: 4 TABLETS WEEKLY, AS REQUIRED, FROM THE FIRST TRIMESTER DURING PREGNANCY
     Route: 065

REACTIONS (1)
  - Drug withdrawal syndrome neonatal [Not Recovered/Not Resolved]
